FAERS Safety Report 15321356 (Version 1)
Quarter: 2018Q3

REPORT INFORMATION
  Report Type: Spontaneous
  Country: CN (occurrence: CN)
  Receive Date: 20180827
  Receipt Date: 20180827
  Transmission Date: 20181010
  Serious: Yes (Hospitalization)
  Sender: FDA-Public Use
  Company Number: CN-SA-2018SA232130

PATIENT
  Age: 75 Year
  Sex: Male

DRUGS (5)
  1. PLAVIX [Suspect]
     Active Substance: CLOPIDOGREL BISULFATE
     Indication: CORONARY ARTERY DISEASE
     Dosage: 75 MG, QD
     Route: 048
     Dates: start: 20180813, end: 20180813
  2. SHEN JIE [Concomitant]
     Indication: PRODUCT USED FOR UNKNOWN INDICATION
     Dosage: 2 ML/40 MG/30 DRIPS
     Route: 041
     Dates: start: 20180813, end: 20180813
  3. NI FU DA [Concomitant]
     Indication: PRODUCT USED FOR UNKNOWN INDICATION
     Dosage: 20 MG, QD
     Route: 048
     Dates: start: 20180813, end: 20180813
  4. CRESTOR [Concomitant]
     Active Substance: ROSUVASTATIN CALCIUM
     Indication: LIQUID PRODUCT PHYSICAL ISSUE
     Dosage: 10 MG
     Route: 048
     Dates: start: 20180803, end: 20180803
  5. GLUCOSE INJECTION [Concomitant]
     Active Substance: DEXTROSE
     Indication: SOLVENT SENSITIVITY
     Dosage: 250 ML/30 DRIPS
     Route: 041
     Dates: start: 20180813, end: 20180813

REACTIONS (6)
  - Musculoskeletal stiffness [Recovering/Resolving]
  - Pain [Recovering/Resolving]
  - Dizziness [Unknown]
  - Rash [Not Recovered/Not Resolved]
  - Asthenia [Recovered/Resolved]
  - Pruritus [Recovering/Resolving]

NARRATIVE: CASE EVENT DATE: 20180814
